FAERS Safety Report 9540611 (Version 1)
Quarter: 2013Q3

REPORT INFORMATION
  Report Type: Spontaneous
  Country: US (occurrence: US)
  Receive Date: 20130920
  Receipt Date: 20130920
  Transmission Date: 20140515
  Serious: No
  Sender: FDA-Public Use
  Company Number: US-009507513-1309USA008209

PATIENT
  Sex: Female

DRUGS (1)
  1. NUVARING [Suspect]
     Indication: CONTRACEPTION
     Dosage: UNK
     Route: 067
     Dates: start: 200807, end: 201305

REACTIONS (6)
  - Paraplegia [Recovered/Resolved]
  - Thrombophlebitis superficial [Unknown]
  - Infection [Unknown]
  - Infection [Unknown]
  - Deep vein thrombosis [Unknown]
  - Paraplegia [Unknown]
